FAERS Safety Report 12009561 (Version 1)
Quarter: 2016Q1

REPORT INFORMATION
  Report Type: Spontaneous
  Country: US (occurrence: US)
  Receive Date: 20160205
  Receipt Date: 20160205
  Transmission Date: 20160526
  Serious: No
  Sender: FDA-Public Use
  Company Number: US-PFIZER INC-2016012228

PATIENT
  Sex: Female

DRUGS (1)
  1. CHANTIX [Suspect]
     Active Substance: VARENICLINE TARTRATE
     Dosage: 2X/DAY, HALF IN THE MORNING AND HALF IN THE EVENING

REACTIONS (2)
  - Drug intolerance [Unknown]
  - Intentional product misuse [Unknown]
